FAERS Safety Report 21154576 (Version 1)
Quarter: 2022Q3

REPORT INFORMATION
  Report Type: Spontaneous
  Country: JP (occurrence: JP)
  Receive Date: 20220801
  Receipt Date: 20220801
  Transmission Date: 20221026
  Serious: Yes (Other)
  Sender: FDA-Public Use
  Company Number: JP-Atnahs Limited-ATNAHS20220706342

PATIENT
  Age: 8 Decade
  Sex: Female

DRUGS (1)
  1. BONVIVA [Suspect]
     Active Substance: IBANDRONATE SODIUM
     Indication: Osteoporosis
     Dosage: 1 MG
     Route: 042
     Dates: start: 2021

REACTIONS (6)
  - Exposed bone in jaw [Unknown]
  - Tooth extraction [Unknown]
  - Peripheral coldness [Unknown]
  - Tinnitus [Unknown]
  - Pain in extremity [Unknown]
  - Musculoskeletal stiffness [Unknown]
